FAERS Safety Report 7251541-3 (Version None)
Quarter: 2011Q1

REPORT INFORMATION
  Report Type: 
  Country: None (occurrence: None)
  Receive Date: 20110128
  Receipt Date: 20110114
  Transmission Date: 20110831
  Serious: Yes (Hospitalization)
  Sender: FDA-Public Use
  Company Number: US-ELI_LILLY_AND_COMPANY-US201012005257

PATIENT
  Sex: Female

DRUGS (4)
  1. HYDROCODONE [Concomitant]
  2. ENOXAPARIN [Concomitant]
  3. FORTEO [Suspect]
     Indication: OSTEOPOROSIS
     Dosage: 20 UG, DAILY (1/D)
     Dates: start: 20091210
  4. ALEVE [Concomitant]

REACTIONS (2)
  - ARTHROPATHY [None]
  - DIZZINESS [None]
